FAERS Safety Report 23970016 (Version 1)
Quarter: 2024Q2

REPORT INFORMATION
  Report Type: Spontaneous
  Country: US (occurrence: US)
  Receive Date: 20240613
  Receipt Date: 20240613
  Transmission Date: 20240716
  Serious: Yes (Other)
  Sender: FDA-Public Use
  Company Number: US-002147023-NVSC2024US122843

PATIENT
  Age: 74 Year
  Sex: Male

DRUGS (4)
  1. LEQVIO [Suspect]
     Active Substance: INCLISIRAN SODIUM
     Indication: Low density lipoprotein
     Dosage: 1.5 ML (EVERY SIX MONTH)
     Route: 058
     Dates: start: 202210
  2. LEQVIO [Suspect]
     Active Substance: INCLISIRAN SODIUM
     Dosage: 1.5 ML (EVERY SIX MONTH)
     Route: 058
     Dates: start: 202301
  3. LEQVIO [Suspect]
     Active Substance: INCLISIRAN SODIUM
     Dosage: 1.5 ML (EVERY SIX MONTH)
     Route: 058
     Dates: start: 202308
  4. LEQVIO [Suspect]
     Active Substance: INCLISIRAN SODIUM
     Dosage: 1.5 ML (EVERY SIX MONTH)
     Route: 058
     Dates: start: 202402

REACTIONS (1)
  - Retinopathy [Recovering/Resolving]

NARRATIVE: CASE EVENT DATE: 20230601
